FAERS Safety Report 15350795 (Version 1)
Quarter: 2018Q3

REPORT INFORMATION
  Report Type: Spontaneous
  Country: NO (occurrence: NO)
  Receive Date: 20180905
  Receipt Date: 20180905
  Transmission Date: 20181010
  Serious: Yes (Other)
  Sender: FDA-Public Use
  Company Number: NO-ROCHE-2179535

PATIENT
  Age: 46 Year
  Sex: Female
  Weight: 61 kg

DRUGS (2)
  1. MABTHERA [Suspect]
     Active Substance: RITUXIMAB
     Indication: MULTIPLE SCLEROSIS
     Dosage: DATE OF LAST DOSE: 20/APR/2018
     Route: 065
     Dates: start: 20170420
  2. BAKLOFEN [Concomitant]
     Active Substance: BACLOFEN
     Route: 065
     Dates: start: 20170507

REACTIONS (7)
  - Folate deficiency [Recovering/Resolving]
  - Depression [Unknown]
  - Fatigue [Recovering/Resolving]
  - Musculoskeletal stiffness [Recovering/Resolving]
  - Muscle spasms [Recovering/Resolving]
  - Muscle tightness [Recovering/Resolving]
  - Myalgia [Recovering/Resolving]

NARRATIVE: CASE EVENT DATE: 20180526
